FAERS Safety Report 6187322-1 (Version None)
Quarter: 2009Q2

REPORT INFORMATION
  Report Type: 
  Country: None (occurrence: None)
  Receive Date: 20090512
  Receipt Date: 20090507
  Transmission Date: 20091009
  Serious: Yes (Other)
  Sender: FDA-Public Use
  Company Number: US-JNJFOC-20090501647

PATIENT
  Sex: Female

DRUGS (5)
  1. RISPERIDONE [Suspect]
     Indication: PSYCHOTIC DISORDER
     Route: 065
  2. RISPERIDONE [Suspect]
     Indication: MAJOR DEPRESSION
     Dosage: AT BED TIME
     Route: 065
  3. FLUOXETINE [Suspect]
     Indication: DEPRESSED MOOD
     Route: 065
  4. HALOPERIDOL [Concomitant]
     Indication: PSYCHOTIC DISORDER
     Route: 065
  5. HALOPERIDOL [Concomitant]
     Indication: MAJOR DEPRESSION
     Route: 065

REACTIONS (2)
  - DEPRESSED MOOD [None]
  - TOXIC EPIDERMAL NECROLYSIS [None]
